FAERS Safety Report 17340072 (Version 1)
Quarter: 2020Q1

REPORT INFORMATION
  Report Type: Spontaneous
  Country: US (occurrence: US)
  Receive Date: 20200129
  Receipt Date: 20200129
  Transmission Date: 20200409
  Serious: No
  Sender: FDA-Public Use
  Company Number: US-LANNETT COMPANY, INC.-US-2019LAN001145

PATIENT
  Age: 3 Month
  Sex: Female

DRUGS (1)
  1. RANITIDINE HYDROCHLORIDE. [Suspect]
     Active Substance: RANITIDINE HYDROCHLORIDE
     Indication: GASTROOESOPHAGEAL REFLUX DISEASE
     Dosage: 1.5 ML, BID
     Route: 048
     Dates: start: 2019, end: 20191107

REACTIONS (1)
  - Infantile vomiting [Unknown]

NARRATIVE: CASE EVENT DATE: 201911
